FAERS Safety Report 7783987-9 (Version None)
Quarter: 2011Q3

REPORT INFORMATION
  Report Type: 
  Country: None (occurrence: None)
  Receive Date: 20110928
  Receipt Date: 20110401
  Transmission Date: 20111222
  Serious: No
  Sender: FDA-Public Use
  Company Number: US-MYLANLABS-2011S1006990

PATIENT
  Age: 39 Year
  Sex: Female

DRUGS (3)
  1. TOPAMAX [Concomitant]
  2. FLUOXETINE HCL [Suspect]
     Indication: DEPRESSION
     Route: 048
     Dates: start: 20110310
  3. CHOLESTYRAMINE [Concomitant]

REACTIONS (3)
  - INSOMNIA [None]
  - CHILLS [None]
  - TREMOR [None]
